FAERS Safety Report 25808686 (Version 1)
Quarter: 2025Q3

REPORT INFORMATION
  Report Type: Spontaneous
  Country: US (occurrence: US)
  Receive Date: 20250916
  Receipt Date: 20250916
  Transmission Date: 20251021
  Serious: Yes (Other)
  Sender: PFIZER
  Company Number: US-PFIZER INC-PV202500110446

PATIENT
  Age: 48 Year
  Sex: Female

DRUGS (6)
  1. DOXORUBICIN HYDROCHLORIDE [Suspect]
     Active Substance: DOXORUBICIN HYDROCHLORIDE
     Indication: Metaplastic breast carcinoma
  2. PACLITAXEL [Concomitant]
     Active Substance: PACLITAXEL
     Indication: Metaplastic breast carcinoma
  3. CARBOPLATIN [Concomitant]
     Active Substance: CARBOPLATIN
     Indication: Metaplastic breast carcinoma
  4. PEMBROLIZUMAB [Concomitant]
     Active Substance: PEMBROLIZUMAB
     Indication: Metaplastic breast carcinoma
  5. PEMBROLIZUMAB [Concomitant]
     Active Substance: PEMBROLIZUMAB
  6. CYCLOPHOSPHAMIDE [Concomitant]
     Active Substance: CYCLOPHOSPHAMIDE
     Indication: Metaplastic breast carcinoma

REACTIONS (1)
  - Ejection fraction decreased [Recovered/Resolved]
